FAERS Safety Report 7326461-6 (Version None)
Quarter: 2011Q1

REPORT INFORMATION
  Report Type: 
  Country: None (occurrence: None)
  Receive Date: 20110223
  Receipt Date: 20110209
  Transmission Date: 20110831
  Serious: Yes (Hospitalization)
  Sender: FDA-Public Use
  Company Number: 2011SP000312

PATIENT
  Sex: Female

DRUGS (2)
  1. XOPENEX [Suspect]
     Indication: CHRONIC OBSTRUCTIVE PULMONARY DISEASE
     Dosage: 1.25 MG/3ML;QID;INHALATION
     Route: 055
  2. ALBUTEROL [Concomitant]

REACTIONS (2)
  - BRONCHIAL SECRETION RETENTION [None]
  - INFECTION [None]
